FAERS Safety Report 7826849-0 (Version None)
Quarter: 2011Q4

REPORT INFORMATION
  Report Type: 
  Country: None (occurrence: None)
  Receive Date: 20111018
  Receipt Date: 20110929
  Transmission Date: 20120403
  Serious: Yes (Other)
  Sender: FDA-Public Use
  Company Number: FK201102060

PATIENT
  Age: 17 Month
  Sex: Female

DRUGS (14)
  1. ZOSYN [Concomitant]
  2. MEGESTROL ACETATE [Concomitant]
  3. OXYBUTYNIN [Concomitant]
  4. MERCAPTOPURINE [Concomitant]
  5. IVIG (IMMUNOGLOBULIN) [Concomitant]
  6. TOBRAMYCIN [Concomitant]
  7. BACTRIM [Concomitant]
  8. MORPHINE [Concomitant]
  9. NYSTATIN [Concomitant]
  10. VORICONAZOLE [Concomitant]
  11. ZYRTEC [Concomitant]
  12. CYPROHEPTADINE HCL [Concomitant]
  13. FAMOTIDINE [Concomitant]
  14. PENTAM [Suspect]
     Indication: PRODUCT USED FOR UNKNOWN INDICATION
     Dosage: 30, 1 IN 1 D, INTRAVENOUS (NOT OTHERWISE SPECIFIED)
     Route: 042
     Dates: start: 20110920, end: 20110928

REACTIONS (1)
  - CYSTITIS HAEMORRHAGIC [None]
